FAERS Safety Report 9391859 (Version 1)
Quarter: 2013Q3

REPORT INFORMATION
  Report Type: Spontaneous
  Country: US (occurrence: None)
  Receive Date: 20130705
  Receipt Date: 20130705
  Transmission Date: 20140515
  Serious: Yes (Other)
  Sender: FDA-Public Use
  Company Number: JPI-P-033090

PATIENT
  Age: 28 Year
  Sex: Female

DRUGS (1)
  1. XYREM (500 MILLIGRAM/MILLILITERS, SOLUTION) (SODIUM OXYBATE) [Suspect]
     Indication: HYPERSOMNIA
     Dosage: 4.5 GM, (2.25 GM, 2 IN 1 D)
     Route: 048
     Dates: start: 20091111

REACTIONS (3)
  - Maternal drugs affecting foetus [None]
  - Abortion spontaneous [None]
  - Sleep disorder [None]
